FAERS Safety Report 21866044 (Version 2)
Quarter: 2023Q1

REPORT INFORMATION
  Report Type: Spontaneous
  Country: JP (occurrence: JP)
  Receive Date: 20230116
  Receipt Date: 20230308
  Transmission Date: 20230418
  Serious: No
  Sender: FDA-Public Use
  Company Number: JP-GLAXOSMITHKLINE-JP2022JPN130801

PATIENT

DRUGS (6)
  1. BENLYSTA [Suspect]
     Active Substance: BELIMUMAB
     Indication: Systemic lupus erythematosus
     Dosage: 200 MG, WE
     Route: 058
     Dates: start: 20190606
  2. CELLCEPT [Concomitant]
     Active Substance: MYCOPHENOLATE MOFETIL
     Indication: Systemic lupus erythematosus
     Dosage: 500 MG, 1D
     Route: 048
     Dates: start: 20180510, end: 20220519
  3. PLAQUENIL TABLETS (HYDROXYCHLOROQUINE SULFATE) [Concomitant]
     Indication: Systemic lupus erythematosus
     Dosage: 200MG/400MG, 1D
     Route: 048
     Dates: start: 20180301
  4. PREDNISOLONE [Concomitant]
     Active Substance: PREDNISOLONE
     Indication: Systemic lupus erythematosus
     Dosage: 5 MG, 1D
     Route: 048
     Dates: start: 20210610
  5. ASPIRIN [Concomitant]
     Active Substance: ASPIRIN
     Indication: Antiphospholipid syndrome
     Dosage: 100 MG, 1D
     Route: 048
     Dates: start: 20220630, end: 20221220
  6. HEPARIN CALCIUM [Concomitant]
     Active Substance: HEPARIN CALCIUM
     Indication: Antiphospholipid syndrome
     Dosage: 10000 IU, 1D
     Route: 058
     Dates: start: 20220630, end: 20221220

REACTIONS (3)
  - Exposure during pregnancy [Unknown]
  - Live birth [Unknown]
  - Breast feeding [Unknown]

NARRATIVE: CASE EVENT DATE: 20221223
